FAERS Safety Report 18890255 (Version 2)
Quarter: 2021Q2

REPORT INFORMATION
  Report Type: Report from Study
  Country: US (occurrence: US)
  Receive Date: 20210214
  Receipt Date: 20210410
  Transmission Date: 20210717
  Serious: Yes (Other)
  Sender: FDA-Public Use
  Company Number: US-UCBSA-2021005573

PATIENT
  Sex: Male

DRUGS (1)
  1. LACOSAMIDE. [Suspect]
     Active Substance: LACOSAMIDE
     Indication: SEIZURE
     Dosage: 150 MILLIGRAM, 2X/DAY (BID)

REACTIONS (3)
  - Seizure [Not Recovered/Not Resolved]
  - Clavicle fracture [Not Recovered/Not Resolved]
  - Fall [Not Recovered/Not Resolved]
